FAERS Safety Report 26092349 (Version 1)
Quarter: 2025Q4

REPORT INFORMATION
  Report Type: Spontaneous
  Country: US (occurrence: None)
  Receive Date: 20251125
  Receipt Date: 20251125
  Transmission Date: 20260117
  Serious: Yes (Disabling, Other)
  Sender: FDA-CTU
  Company Number: None

PATIENT
  Age: 35 Year
  Sex: Female
  Weight: 68.85 kg

DRUGS (4)
  1. DESVENLAFAXINE [Suspect]
     Active Substance: DESVENLAFAXINE
     Dates: start: 20250412, end: 20250615
  2. ZOLOFT [Suspect]
     Active Substance: SERTRALINE HYDROCHLORIDE
  3. CYMBALTA [Suspect]
     Active Substance: DULOXETINE HYDROCHLORIDE
  4. Prozac 4.75mg Relivion Device [Concomitant]

REACTIONS (19)
  - Facial pain [None]
  - Fatigue [None]
  - Therapeutic product effect decreased [None]
  - Memory impairment [None]
  - Brain fog [None]
  - Migraine [None]
  - Symptom recurrence [None]
  - Therapy interrupted [None]
  - Feeling abnormal [None]
  - Hangover [None]
  - Dyspnoea [None]
  - Muscle twitching [None]
  - Heart rate irregular [None]
  - Diarrhoea [None]
  - Hot flush [None]
  - Pallor [None]
  - General physical health deterioration [None]
  - Antidepressant discontinuation syndrome [None]
  - Withdrawal syndrome [None]

NARRATIVE: CASE EVENT DATE: 20250615
